FAERS Safety Report 7560511-7 (Version None)
Quarter: 2011Q2

REPORT INFORMATION
  Report Type: 
  Country: None (occurrence: None)
  Receive Date: 20110614
  Receipt Date: 20110601
  Transmission Date: 20111010
  Serious: Yes (Death, Hospitalization, Other)
  Sender: FDA-Public Use
  Company Number: 2011MA006675

PATIENT
  Age: 19 Year
  Sex: Female

DRUGS (3)
  1. VENLAFAXINE HYDROCHLORIDE [Suspect]
     Indication: DEPRESSION
  2. QUETIAPINE [Concomitant]
  3. TOPIRAMATE [Concomitant]

REACTIONS (18)
  - DYSPNOEA [None]
  - COMA SCALE ABNORMAL [None]
  - HEART RATE INCREASED [None]
  - RHABDOMYOLYSIS [None]
  - BLOOD PRESSURE DECREASED [None]
  - BLOOD GLUCOSE INCREASED [None]
  - DEPRESSED LEVEL OF CONSCIOUSNESS [None]
  - PYREXIA [None]
  - BRAIN OEDEMA [None]
  - SOMNOLENCE [None]
  - GENERAL PHYSICAL HEALTH DETERIORATION [None]
  - BLOOD PH DECREASED [None]
  - NOSOCOMIAL INFECTION [None]
  - BLOOD POTASSIUM DECREASED [None]
  - METABOLIC ACIDOSIS [None]
  - CARDIAC FAILURE [None]
  - MULTIPLE DRUG OVERDOSE [None]
  - GRAND MAL CONVULSION [None]
